FAERS Safety Report 6619713-6 (Version None)
Quarter: 2010Q1

REPORT INFORMATION
  Report Type: 
  Country: None (occurrence: None)
  Receive Date: 20100309
  Receipt Date: 20100223
  Transmission Date: 20100710
  Serious: Yes (Disabling)
  Sender: FDA-Public Use
  Company Number: PHHY2010AU08107

PATIENT
  Sex: Female
  Weight: 54 kg

DRUGS (7)
  1. ACLASTA [Suspect]
     Dosage: 5 MG/100 ML
     Route: 042
     Dates: start: 20100112
  2. CALCIA [Concomitant]
     Dosage: 500 MG/400 IU ONE DAILY
     Route: 048
     Dates: start: 20090101
  3. VITAMIN D [Concomitant]
     Dosage: 500 MG/400IU ONE DAILY
     Route: 048
     Dates: start: 20090101
  4. HYDROXOCOBALAMIN [Concomitant]
     Dosage: 1 MG/ML (ONE AS DIRECTED)
     Route: 030
     Dates: start: 19800101
  5. PANADOL [Concomitant]
     Dosage: 665 MG, 2 TO 3 TIMES A DAY
     Route: 048
     Dates: start: 20100130
  6. LASIX [Concomitant]
     Dosage: 40 MG, UNK
     Route: 048
  7. CABLE [Concomitant]
     Dosage: UNK

REACTIONS (18)
  - ABDOMINAL PAIN [None]
  - ANAEMIA [None]
  - ARTHRALGIA [None]
  - BLOOD CALCIUM DECREASED [None]
  - BLOOD IRON DECREASED [None]
  - BONE PAIN [None]
  - C-REACTIVE PROTEIN INCREASED [None]
  - DECREASED APPETITE [None]
  - FATIGUE [None]
  - INFLUENZA LIKE ILLNESS [None]
  - IRON BINDING CAPACITY TOTAL DECREASED [None]
  - JOINT SWELLING [None]
  - MALAISE [None]
  - NAUSEA [None]
  - PROTEIN TOTAL DECREASED [None]
  - RED BLOOD CELL SEDIMENTATION RATE INCREASED [None]
  - TEMPOROMANDIBULAR JOINT SYNDROME [None]
  - TRANSFERRIN SATURATION DECREASED [None]
